FAERS Safety Report 19691624 (Version 4)
Quarter: 2021Q4

REPORT INFORMATION
  Report Type: Report from Study
  Country: FR (occurrence: FR)
  Receive Date: 20210812
  Receipt Date: 20211005
  Transmission Date: 20220303
  Serious: Yes (Hospitalization)
  Sender: FDA-Public Use
  Company Number: FR-JNJFOC-20210538898

PATIENT
  Age: 47 Year
  Sex: Female

DRUGS (6)
  1. SPRAVATO [Suspect]
     Active Substance: ESKETAMINE
     Indication: Product used for unknown indication
     Dosage: 2 DOSE TOTAL
     Dates: start: 20191126, end: 20191128
  2. SPRAVATO [Suspect]
     Active Substance: ESKETAMINE
     Dosage: 49 DOSES
     Dates: start: 20200324, end: 20210721
  3. LAMOTRIGINE [Concomitant]
     Active Substance: LAMOTRIGINE
     Indication: Depression
     Dates: start: 20200110
  4. TERALITHE [Concomitant]
     Active Substance: LITHIUM CARBONATE
     Dosage: POTENTIALISATOR
     Dates: start: 20200518
  5. LEVOMEPROMAZINE [Concomitant]
     Active Substance: LEVOMEPROMAZINE
     Indication: Sedative therapy
  6. LORAZEPAM [Concomitant]
     Active Substance: LORAZEPAM
     Indication: Anxiolytic therapy
     Dates: start: 20200509

REACTIONS (2)
  - Anxiety [Recovered/Resolved]
  - Drug ineffective [Recovered/Resolved]

NARRATIVE: CASE EVENT DATE: 20200501
